FAERS Safety Report 5640891-X (Version None)
Quarter: 2008Q1

REPORT INFORMATION
  Report Type: 
  Country: None (occurrence: None)
  Receive Date: 20080227
  Receipt Date: 20080222
  Transmission Date: 20080703
  Serious: Yes (Other)
  Sender: FDA-Public Use
  Company Number: B0507623A

PATIENT
  Age: 20 Year
  Sex: Male

DRUGS (4)
  1. RELENZA [Suspect]
     Indication: INFLUENZA
     Dosage: 10MG TWICE PER DAY
     Route: 055
     Dates: start: 20080204, end: 20080205
  2. GANATON [Concomitant]
     Indication: NAUSEA
     Route: 048
  3. MEIACT [Concomitant]
     Route: 048
     Dates: start: 20080204
  4. COCARL [Concomitant]
     Route: 048
     Dates: start: 20080204

REACTIONS (2)
  - ABNORMAL BEHAVIOUR [None]
  - AMNESIA [None]
